FAERS Safety Report 10238346 (Version 4)
Quarter: 2016Q1

REPORT INFORMATION
  Report Type: Spontaneous
  Country: US (occurrence: US)
  Receive Date: 20140616
  Receipt Date: 20160119
  Transmission Date: 20160525
  Serious: Yes (Other)
  Sender: FDA-Public Use
  Company Number: US-PFIZER INC-2014163229

PATIENT
  Age: 81 Year
  Sex: Female
  Weight: 107 kg

DRUGS (8)
  1. HUMALOG MIX [Concomitant]
     Active Substance: INSULIN LISPRO
     Indication: DIABETES MELLITUS
     Dosage: 150 IU, DAILY (80 UNITS INJECTION IN THE MORNING 70UNITS INJECTION IN THE EVENING)
  2. NEURONTIN [Suspect]
     Active Substance: GABAPENTIN
     Indication: DIABETIC NEUROPATHY
     Dosage: 600 MG, 3X/DAY
     Route: 048
  3. COUMADIN [Concomitant]
     Active Substance: WARFARIN SODIUM
     Indication: ANTICOAGULANT THERAPY
     Dosage: UNK (5.5MG THREE DAYS A WEEK BY MOUTH, 7.0MG FOUR DAYS A WEEK)
     Route: 048
  4. ZETIA [Concomitant]
     Active Substance: EZETIMIBE
     Indication: BLOOD TRIGLYCERIDES INCREASED
     Dosage: 1 DF, 1X/DAY
     Route: 048
  5. TOPROL XL [Concomitant]
     Active Substance: METOPROLOL SUCCINATE
     Indication: BLOOD CHOLESTEROL
     Dosage: 1 DF, 2X/DAY
     Route: 048
  6. LASIX [Concomitant]
     Active Substance: FUROSEMIDE
     Indication: SWELLING
     Dosage: 40 MG, AS NEEDED (ONE TABLET BY MOUTH A DAY OR TAKE TWO)
     Dates: start: 2002
  7. POTASSIUM [Concomitant]
     Active Substance: POTASSIUM
     Dosage: 80 MG, DAILY
     Route: 048
     Dates: start: 2002
  8. TOPROL XL [Concomitant]
     Active Substance: METOPROLOL SUCCINATE
     Indication: CARDIAC DISORDER

REACTIONS (15)
  - Ankle fracture [Recovered/Resolved]
  - Crepitations [Unknown]
  - Foot fracture [Recovered/Resolved]
  - Hypoacusis [Unknown]
  - Activities of daily living impaired [Unknown]
  - Pain [Not Recovered/Not Resolved]
  - Product label issue [Unknown]
  - Confusional state [Unknown]
  - Oedema [Not Recovered/Not Resolved]
  - Dysstasia [Not Recovered/Not Resolved]
  - Peripheral swelling [Unknown]
  - Road traffic accident [Recovered/Resolved]
  - Gait disturbance [Recovered/Resolved]
  - Nervousness [Not Recovered/Not Resolved]
  - Pain in extremity [Unknown]

NARRATIVE: CASE EVENT DATE: 20141230
